FAERS Safety Report 25047128 (Version 1)
Quarter: 2025Q1

REPORT INFORMATION
  Report Type: Spontaneous
  Country: ES (occurrence: ES)
  Receive Date: 20250306
  Receipt Date: 20250306
  Transmission Date: 20250408
  Serious: Yes (Other)
  Sender: TEVA
  Company Number: ES-TEVA-VS-3304538

PATIENT
  Age: 1 Year
  Sex: Female

DRUGS (13)
  1. CARBOPLATIN [Suspect]
     Active Substance: CARBOPLATIN
     Indication: Congenital retinoblastoma
     Route: 042
  2. ETOPOSIDE [Suspect]
     Active Substance: ETOPOSIDE
     Indication: Congenital retinoblastoma
     Dosage: ON D1 AND 2
     Route: 042
  3. ETOPOSIDE [Suspect]
     Active Substance: ETOPOSIDE
     Indication: Congenital retinoblastoma
     Route: 042
  4. ETOPOSIDE [Suspect]
     Active Substance: ETOPOSIDE
     Indication: Congenital retinoblastoma
     Route: 065
  5. VINCRISTINE [Suspect]
     Active Substance: VINCRISTINE
     Indication: Congenital retinoblastoma
     Route: 042
  6. VINCRISTINE [Suspect]
     Active Substance: VINCRISTINE
     Indication: Congenital retinoblastoma
     Route: 042
  7. CYCLOPHOSPHAMIDE [Suspect]
     Active Substance: CYCLOPHOSPHAMIDE
     Indication: Congenital retinoblastoma
     Route: 042
  8. THIOTEPA [Suspect]
     Active Substance: THIOTEPA
     Indication: Congenital retinoblastoma
     Dosage: FOR 1?DAY
     Route: 065
  9. SARGRAMOSTIM [Suspect]
     Active Substance: SARGRAMOSTIM
     Indication: Congenital retinoblastoma
     Dosage: ON DAYS 0-5
     Route: 065
  10. NAXITAMAB [Suspect]
     Active Substance: NAXITAMAB
     Indication: Congenital retinoblastoma
     Dosage: ON DAYS 1,3 AND 5
     Route: 065
  11. MELPHALAN [Suspect]
     Active Substance: MELPHALAN
     Indication: Congenital retinoblastoma
     Route: 013
  12. TOPOTECAN [Suspect]
     Active Substance: TOPOTECAN HYDROCHLORIDE
     Indication: Congenital retinoblastoma
     Route: 013
  13. TOPOTECAN [Suspect]
     Active Substance: TOPOTECAN HYDROCHLORIDE
     Indication: Congenital retinoblastoma
     Route: 037

REACTIONS (9)
  - Blindness [Unknown]
  - Urticaria [Unknown]
  - Deafness bilateral [Unknown]
  - Hypoacusis [Unknown]
  - Deafness neurosensory [Unknown]
  - Pain [Unknown]
  - Glaucoma [Unknown]
  - Retinal detachment [Unknown]
  - Drug ineffective [Unknown]
